FAERS Safety Report 15668797 (Version 2)
Quarter: 2018Q4

REPORT INFORMATION
  Report Type: Spontaneous
  Country: GB (occurrence: GB)
  Receive Date: 20181129
  Receipt Date: 20181206
  Transmission Date: 20190205
  Serious: Yes (Life-Threatening, Hospitalization, Other)
  Sender: FDA-Public Use
  Company Number: GB-AUROBINDO-08-AUR-05616

PATIENT
  Age: 83 Year
  Sex: Male

DRUGS (1)
  1. METFORMIN HYDROCHLORIDE 500 MG FILM-COATED TABLETS [Suspect]
     Active Substance: METFORMIN HYDROCHLORIDE
     Dosage: 1700 - 2000 MG, MBER OF UNITS IN INTERVAL: 1
     Route: 048

REACTIONS (5)
  - Abdominal pain [Recovering/Resolving]
  - Acute kidney injury [Recovering/Resolving]
  - Vomiting [Recovering/Resolving]
  - Lactic acidosis [Recovered/Resolved]
  - Hypotension [Recovering/Resolving]
